FAERS Safety Report 9481246 (Version 1)
Quarter: 2013Q3

REPORT INFORMATION
  Report Type: Spontaneous
  Country: US (occurrence: US)
  Receive Date: 20130828
  Receipt Date: 20130828
  Transmission Date: 20140515
  Serious: No
  Sender: FDA-Public Use
  Company Number: US-BIOGENIDEC-2013BI066708

PATIENT
  Age: 46 Year
  Sex: Female

DRUGS (3)
  1. AVONEX [Suspect]
     Indication: MULTIPLE SCLEROSIS
     Route: 030
     Dates: start: 20010731
  2. AVONEX [Suspect]
     Indication: MULTIPLE SCLEROSIS
     Route: 030
     Dates: start: 20040818, end: 20120531
  3. AVONEX [Suspect]
     Indication: MULTIPLE SCLEROSIS
     Route: 030
     Dates: start: 20120601

REACTIONS (10)
  - Back pain [Recovered/Resolved]
  - Hypoaesthesia [Not Recovered/Not Resolved]
  - Irritability [Recovered/Resolved with Sequelae]
  - Drug dose omission [Recovered/Resolved]
  - Malaise [Not Recovered/Not Resolved]
  - Pyrexia [Recovered/Resolved with Sequelae]
  - Pain [Recovered/Resolved with Sequelae]
  - Musculoskeletal stiffness [Unknown]
  - Feeling abnormal [Recovered/Resolved with Sequelae]
  - Paraesthesia [Not Recovered/Not Resolved]
